FAERS Safety Report 4486160-5 (Version None)
Quarter: 2004Q4

REPORT INFORMATION
  Report Type: 
  Country: None (occurrence: None)
  Receive Date: 20041026
  Receipt Date: 20041018
  Transmission Date: 20050328
  Serious: Yes (Life-Threatening, Hospitalization, Disabling)
  Sender: FDA-Public Use
  Company Number: US-MERCK-0410USA02732

PATIENT
  Age: 38 Year
  Sex: Female

DRUGS (11)
  1. VIOXX [Suspect]
     Indication: PAIN
     Route: 048
     Dates: start: 20001101, end: 20040112
  2. HYDROXYZINE HYDROCHLORIDE [Concomitant]
     Route: 065
  3. LAMICTAL [Concomitant]
     Route: 065
  4. TRAZODONE HYDROCHLORIDE [Concomitant]
     Route: 065
  5. LEXAPRO [Concomitant]
     Route: 065
  6. PREVACID [Concomitant]
     Route: 065
  7. LORATADINE [Concomitant]
     Route: 065
  8. COUMADIN [Concomitant]
     Route: 065
  9. ALBUTEROL [Concomitant]
     Route: 065
  10. ADVAIR DISKUS 100/50 [Concomitant]
     Route: 065
  11. VALTREX [Concomitant]
     Route: 065

REACTIONS (3)
  - DYSPNOEA [None]
  - PULMONARY EMBOLISM [None]
  - THROMBOSIS [None]
